FAERS Safety Report 18378698 (Version 2)
Quarter: 2020Q4

REPORT INFORMATION
  Report Type: Spontaneous
  Country: IT (occurrence: IT)
  Receive Date: 20201014
  Receipt Date: 20201223
  Transmission Date: 20210114
  Serious: Yes (Other)
  Sender: FDA-Public Use
  Company Number: IT-SUN PHARMACEUTICAL INDUSTRIES LTD-2020RR-264096

PATIENT
  Age: 78 Year
  Sex: Male

DRUGS (3)
  1. PREGABALIN. [Suspect]
     Active Substance: PREGABALIN
     Indication: TRIGEMINAL NEURALGIA
     Dosage: 1 DOSAGE FORM, DAILY
     Route: 048
     Dates: start: 20200727
  2. TAPENTADOL [Suspect]
     Active Substance: TAPENTADOL
     Indication: TRIGEMINAL NEURALGIA
     Dosage: 1 DOSAGE FORM, DAILY
     Route: 048
     Dates: start: 20200727
  3. TEGRETOL [Suspect]
     Active Substance: CARBAMAZEPINE
     Indication: TRIGEMINAL NEURALGIA
     Dosage: 1 DOSAGE FORM, DAILY
     Route: 048
     Dates: start: 20200727

REACTIONS (2)
  - Nausea [Unknown]
  - Vomiting [Unknown]

NARRATIVE: CASE EVENT DATE: 20200824
